FAERS Safety Report 7890178-X (Version None)
Quarter: 2011Q4

REPORT INFORMATION
  Report Type: 
  Country: None (occurrence: None)
  Receive Date: 20111103
  Receipt Date: 20111028
  Transmission Date: 20120403
  Serious: Yes (Other)
  Sender: FDA-Public Use
  Company Number: US-AMGEN-USASP2011056190

PATIENT
  Age: 66 Year
  Sex: Female

DRUGS (2)
  1. TREXALL [Concomitant]
  2. ENBREL [Suspect]
     Indication: PSORIATIC ARTHROPATHY
     Dosage: 50 MG, QWK
     Dates: start: 20110404

REACTIONS (3)
  - INJECTION SITE ERYTHEMA [None]
  - TRANSIENT ISCHAEMIC ATTACK [None]
  - INJECTION SITE INDURATION [None]
